FAERS Safety Report 5467561-5 (Version None)
Quarter: 2007Q3

REPORT INFORMATION
  Report Type: 
  Country: None (occurrence: None)
  Receive Date: 20070921
  Receipt Date: 20070914
  Transmission Date: 20080115
  Serious: Yes (Hospitalization)
  Sender: FDA-Public Use
  Company Number: CLOF-10666

PATIENT
  Age: 64 Year
  Sex: Female
  Weight: 48.3 kg

DRUGS (16)
  1. CLOFARABINE. MFR: GENZYME [Suspect]
     Indication: ACUTE MYELOID LEUKAEMIA
     Dosage: 22.2 MG QD X 5 IV
     Route: 042
     Dates: start: 20070827, end: 20070831
  2. CLOFARABINE. MFR: GENZYME [Suspect]
     Indication: ACUTE MYELOID LEUKAEMIA
     Dosage: 22.65 MG QD X 5 IV
     Route: 042
     Dates: start: 20070719, end: 20070723
  3. LORAZEPAM [Concomitant]
  4. OXYCODONE HCL [Concomitant]
  5. ONDANSETRON [Concomitant]
  6. ACYCLOVIR [Concomitant]
  7. CIPROFLOXACIN [Concomitant]
  8. HYDROCORTISONE [Concomitant]
  9. VANDERBILT [Concomitant]
  10. ALLEGRA [Concomitant]
  11. ZETIA [Concomitant]
  12. AMARYL [Concomitant]
  13. ENTOCORT EC [Concomitant]
  14. ACTOS [Concomitant]
  15. PROTONIX [Concomitant]
  16. IRON [Concomitant]

REACTIONS (9)
  - ABDOMINAL PAIN [None]
  - AORTIC ARTERIOSCLEROSIS [None]
  - AORTIC CALCIFICATION [None]
  - BALANCE DISORDER [None]
  - CEPHALHAEMATOMA [None]
  - CHEST PAIN [None]
  - FALL [None]
  - FEBRILE NEUTROPENIA [None]
  - INSOMNIA [None]
